FAERS Safety Report 8494544-3 (Version None)
Quarter: 2012Q3

REPORT INFORMATION
  Report Type: 
  Country: None (occurrence: None)
  Receive Date: 20120709
  Receipt Date: 20120627
  Transmission Date: 20120928
  Serious: Yes (Other)
  Sender: FDA-Public Use
  Company Number: PHHY2012BR057768

PATIENT
  Age: 52 Year
  Sex: Female

DRUGS (2)
  1. BECLOMETHASONE DIPROPIONATE [Suspect]
     Indication: COUGH
  2. ONBREZ [Suspect]
     Indication: COUGH

REACTIONS (6)
  - EYE PAIN [None]
  - DYSPNOEA [None]
  - COUGH [None]
  - BENIGN NEOPLASM [None]
  - CYANOSIS [None]
  - DRUG INEFFECTIVE [None]
